FAERS Safety Report 21503431 (Version 2)
Quarter: 2025Q4

REPORT INFORMATION
  Report Type: Spontaneous
  Country: US (occurrence: US)
  Receive Date: 20221025
  Receipt Date: 20251007
  Transmission Date: 20260117
  Serious: Yes (Hospitalization, Other)
  Sender: PFIZER
  Company Number: US-PFIZER INC-PV202200089172

PATIENT
  Age: 65 Year
  Sex: Female

DRUGS (2)
  1. IBRANCE [Suspect]
     Active Substance: PALBOCICLIB
     Indication: Breast cancer metastatic
     Dosage: 125MG CAPSULE ONCE DAILY FOR 21 DAYS; 7 DAYS OFF
     Dates: start: 201908
  2. FULVESTRANT [Concomitant]
     Active Substance: FULVESTRANT
     Dosage: UNK
     Dates: start: 201908

REACTIONS (7)
  - Pulmonary thrombosis [Recovering/Resolving]
  - Second primary malignancy [Recovering/Resolving]
  - Adrenal gland cancer [Recovering/Resolving]
  - Bone pain [Recovering/Resolving]
  - Jaw operation [Recovering/Resolving]
  - Tracheostomy [Recovering/Resolving]
  - Nail growth abnormal [Unknown]

NARRATIVE: CASE EVENT DATE: 20230101
